FAERS Safety Report 5092045-6 (Version None)
Quarter: 2006Q3

REPORT INFORMATION
  Report Type: 
  Country: None (occurrence: None)
  Receive Date: 20060825
  Receipt Date: 20060816
  Transmission Date: 20061208
  Serious: Yes (Disabling)
  Sender: FDA-Public Use
  Company Number: UKP06000206

PATIENT
  Age: 81 Year
  Sex: Male

DRUGS (7)
  1. ASACOL [Suspect]
     Indication: COLITIS ULCERATIVE
     Dosage: 1000 MG, 2/DAY, ORAL
     Route: 048
     Dates: start: 20050922, end: 20060330
  2. FERROUS SULFATE TAB [Concomitant]
  3. LANSOPRAZOLE [Concomitant]
  4. MEBEVERINE [Concomitant]
  5. MOVICOL [Concomitant]
  6. PREDNISOLONE [Concomitant]
  7. SERETIDE           (SALMETEROL XINAFOATE, FLUTICASONE PROPIONATE) [Concomitant]

REACTIONS (1)
  - ALVEOLITIS [None]
